FAERS Safety Report 5316236-1 (Version None)
Quarter: 2007Q2

REPORT INFORMATION
  Report Type: 
  Country: None (occurrence: None)
  Receive Date: 20070503
  Receipt Date: 20070420
  Transmission Date: 20071010
  Serious: Yes (Death, Hospitalization)
  Sender: FDA-Public Use
  Company Number: HQWYE631702FEB06

PATIENT
  Sex: Female
  Weight: 78 kg

DRUGS (6)
  1. ENBREL [Suspect]
     Indication: RHEUMATOID ARTHRITIS
     Route: 058
     Dates: start: 19990101, end: 20060101
  2. PANTOPRAZOLE SODIUM [Concomitant]
     Indication: GASTRITIS
     Dates: start: 20050101
  3. LANITOP [Concomitant]
     Indication: CARDIOMYOPATHY
     Dates: start: 20050101
  4. FOSAMAX [Concomitant]
     Indication: OSTEOPOROSIS
     Dates: start: 20050101
  5. METHOTREXATE [Concomitant]
     Dosage: UNKNOWN
  6. PLAVIX [Concomitant]
     Indication: DRUG USE FOR UNKNOWN INDICATION
     Dates: start: 20050101

REACTIONS (2)
  - LOCKED-IN SYNDROME [None]
  - TRANSIENT ISCHAEMIC ATTACK [None]
